FAERS Safety Report 24742645 (Version 1)
Quarter: 2024Q4

REPORT INFORMATION
  Report Type: Spontaneous
  Country: US (occurrence: None)
  Receive Date: 20241216
  Receipt Date: 20241216
  Transmission Date: 20250114
  Serious: Yes (unspecified)
  Sender: Public
  Company Number: None

PATIENT
  Age: 53 Year
  Sex: Male
  Weight: 99 kg

DRUGS (2)
  1. UNSPECIFIED INGREDIENT [Suspect]
     Active Substance: UNSPECIFIED INGREDIENT
     Indication: Eye irritation
     Dates: start: 20241025, end: 20241025
  2. TOBRADEX [Suspect]
     Active Substance: DEXAMETHASONE\TOBRAMYCIN

REACTIONS (8)
  - Drug hypersensitivity [None]
  - Eye irritation [None]
  - Vision blurred [None]
  - Application site pain [None]
  - Corneal abrasion [None]
  - Eye colour change [None]
  - Eye pain [None]
  - Toxicity to various agents [None]

NARRATIVE: CASE EVENT DATE: 20241025
